FAERS Safety Report 5071407-7 (Version None)
Quarter: 2006Q3

REPORT INFORMATION
  Report Type: 
  Country: None (occurrence: None)
  Receive Date: 20060804
  Receipt Date: 20060221
  Transmission Date: 20061208
  Serious: No
  Sender: FDA-Public Use
  Company Number: US-AMGEN-US169729

PATIENT
  Sex: Female

DRUGS (14)
  1. ARANESP [Suspect]
     Indication: ANAEMIA
     Route: 058
     Dates: start: 20050713, end: 20060216
  2. ASPIRIN [Concomitant]
  3. VITAMIN B-12 [Concomitant]
  4. AVANDIA [Concomitant]
  5. AVAPRO [Concomitant]
  6. EFFEXOR [Concomitant]
  7. FERROUS SULFATE TAB [Concomitant]
  8. OSCAL [Concomitant]
  9. MEMANTINE HCL [Concomitant]
  10. MYLANTA [Concomitant]
  11. PREVACID [Concomitant]
  12. LIPITOR [Concomitant]
  13. GLUCOPHAGE [Concomitant]
  14. INSULIN [Concomitant]

REACTIONS (1)
  - THERAPEUTIC RESPONSE DECREASED [None]
